FAERS Safety Report 7457788-5 (Version None)
Quarter: 2011Q2

REPORT INFORMATION
  Report Type: 
  Country: None (occurrence: None)
  Receive Date: 20110504
  Receipt Date: 20110429
  Transmission Date: 20111010
  Serious: Yes (Death, Other)
  Sender: FDA-Public Use
  Company Number: DE-ROCHE-774438

PATIENT
  Sex: Female
  Weight: 55 kg

DRUGS (2)
  1. FOLFOX REGIMEN [Concomitant]
     Dates: start: 20100907, end: 20101206
  2. BEVACIZUMAB [Suspect]
     Dosage: DOSE : 5
     Route: 065
     Dates: start: 20100927, end: 20101231

REACTIONS (2)
  - NEOPLASM MALIGNANT [None]
  - MUCOSAL INFLAMMATION [None]
